FAERS Safety Report 6087489-X (Version None)
Quarter: 2009Q1

REPORT INFORMATION
  Report Type: 
  Country: None (occurrence: None)
  Receive Date: 20090223
  Receipt Date: 20090213
  Transmission Date: 20090719
  Serious: Yes (Other)
  Sender: FDA-Public Use
  Company Number: BR-PFIZER INC-2009158177

PATIENT

DRUGS (7)
  1. ATORVASTATIN CALCIUM [Suspect]
     Indication: LIPID METABOLISM DISORDER
     Dosage: 40 MG, 1X/DAY
     Route: 048
  2. LOSARTAN POTASSIUM [Concomitant]
     Dosage: UNK
  3. CALTREN [Concomitant]
     Dosage: UNK
  4. PURAN T4 [Concomitant]
     Dosage: UNK
  5. NAPREX [Concomitant]
     Dosage: UNK
  6. SIBUTRAMINE [Concomitant]
     Dosage: UNK
  7. METFORMIN [Concomitant]
     Dosage: UNK

REACTIONS (2)
  - BLOOD CHOLESTEROL INCREASED [None]
  - DRUG INEFFECTIVE [None]
